FAERS Safety Report 4709425-8 (Version None)
Quarter: 2005Q3

REPORT INFORMATION
  Report Type: 
  Country: None (occurrence: None)
  Receive Date: 20050707
  Receipt Date: 20050707
  Transmission Date: 20060218
  Serious: No
  Sender: FDA-Public Use
  Company Number: None

PATIENT

DRUGS (2)
  1. DILTIAZEM ER 120 MG (ONCE -A-DAY) [Suspect]
     Dosage: TABLET (U.D)
  2. DILTIAZEM ER 120 MG (TWICE -A-DAY) [Suspect]
     Dosage: TABLET (UD)

REACTIONS (1)
  - MEDICATION ERROR [None]
